FAERS Safety Report 17055914 (Version 1)
Quarter: 2019Q4

REPORT INFORMATION
  Report Type: Spontaneous
  Country: US (occurrence: US)
  Receive Date: 20191120
  Receipt Date: 20191120
  Transmission Date: 20200122
  Serious: Yes (Hospitalization, Other)
  Sender: FDA-Public Use
  Company Number: US-AUROBINDO-AUR-APL-2019-073324

PATIENT
  Age: 61 Year
  Sex: Male

DRUGS (1)
  1. NORTRIPTYLINE [Suspect]
     Active Substance: NORTRIPTYLINE
     Indication: PRODUCT USED FOR UNKNOWN INDICATION
     Dosage: 2500 MILLIGRAM
     Route: 065

REACTIONS (5)
  - Drug level increased [Unknown]
  - Intentional overdose [Unknown]
  - Electrocardiogram QRS complex prolonged [Recovered/Resolved]
  - Tachycardia [Unknown]
  - Ventricular arrhythmia [Unknown]
